FAERS Safety Report 7921870-6 (Version None)
Quarter: 2011Q4

REPORT INFORMATION
  Report Type: 
  Country: None (occurrence: None)
  Receive Date: 20111117
  Receipt Date: 20111110
  Transmission Date: 20120403
  Serious: Yes (Hospitalization)
  Sender: FDA-Public Use
  Company Number: CHPA2011US015868

PATIENT
  Age: 70 Year
  Sex: Female

DRUGS (1)
  1. TRANSDERM SCOP [Suspect]
     Indication: MENIERE'S DISEASE
     Dosage: 1 DF, Q72H
     Route: 062

REACTIONS (7)
  - REBOUND EFFECT [None]
  - VOMITING [None]
  - ANXIETY [None]
  - MULTIPLE ALLERGIES [None]
  - DIZZINESS [None]
  - OFF LABEL USE [None]
  - NAUSEA [None]
